FAERS Safety Report 6051173-9 (Version None)
Quarter: 2009Q1

REPORT INFORMATION
  Report Type: 
  Country: None (occurrence: None)
  Receive Date: 20090121
  Receipt Date: 20090112
  Transmission Date: 20090719
  Serious: Yes (Death)
  Sender: FDA-Public Use
  Company Number: POMP-1000452

PATIENT
  Age: 18 Month
  Sex: Male

DRUGS (1)
  1. MYOZYME [Suspect]
     Dosage: 20 MG/KG, Q2W, INTRAVENOUS
     Route: 042
     Dates: start: 20071117, end: 20090109

REACTIONS (1)
  - RESPIRATORY FAILURE [None]
